FAERS Safety Report 23126464 (Version 4)
Quarter: 2024Q2

REPORT INFORMATION
  Report Type: Spontaneous
  Country: US (occurrence: US)
  Receive Date: 20231030
  Receipt Date: 20240516
  Transmission Date: 20240715
  Serious: No
  Sender: FDA-Public Use
  Company Number: US-MYLANLABS-2023M1114079

PATIENT
  Age: 42 Year
  Sex: Female
  Weight: 40 kg

DRUGS (11)
  1. METHIMAZOLE [Suspect]
     Active Substance: METHIMAZOLE
     Indication: Graves^ disease
     Dosage: 5 MILLIGRAM, TID (1/2 TAB 3 TIMES A DAY START DATE: 26-AUG-2023)
     Route: 048
     Dates: start: 20230826, end: 20230914
  2. METHIMAZOLE [Suspect]
     Active Substance: METHIMAZOLE
     Indication: Thyroiditis
     Dosage: 1/2 TABLET (5 MG) A DAY
     Route: 048
     Dates: start: 20231012
  3. METHIMAZOLE [Suspect]
     Active Substance: METHIMAZOLE
     Dosage: UNK
     Route: 048
     Dates: start: 20231022
  4. METHIMAZOLE [Suspect]
     Active Substance: METHIMAZOLE
     Dosage: 10 MG STRENGTH, 1/2 TABLET (5 MG 3 TIMES A DAY)
     Route: 048
     Dates: start: 20231204
  5. METHIMAZOLE [Suspect]
     Active Substance: METHIMAZOLE
     Dosage: 10 MG STRENGTH, 1/2 TABLET (5 MG 2 TIMES A DAY)
     Route: 048
     Dates: start: 20240115, end: 20240210
  6. METOPROLOL [Concomitant]
     Active Substance: METOPROLOL
     Dosage: 10 MILLIGRAM
     Route: 065
  7. METOPROLOL [Concomitant]
     Active Substance: METOPROLOL
     Dosage: 25 MILLIGRAM, QD (START DATE: 26-AUG-2023)
     Route: 065
     Dates: end: 20230908
  8. TRETINOIN [Concomitant]
     Active Substance: TRETINOIN
     Dosage: UNK
     Route: 065
  9. REFRESH OPTIVE ADVANCED [Concomitant]
     Active Substance: CARBOXYMETHYLCELLULOSE SODIUM\GLYCERIN\POLYSORBATE 80
     Dosage: UNK
     Route: 065
  10. REFRESH OPTIVE ADVANCED [Concomitant]
     Active Substance: CARBOXYMETHYLCELLULOSE SODIUM\GLYCERIN\POLYSORBATE 80
     Dosage: UNK
     Route: 065
  11. ADAPALENE [Concomitant]
     Active Substance: ADAPALENE
     Dosage: UNK
     Route: 065

REACTIONS (9)
  - Asthma [Recovered/Resolved]
  - Productive cough [Unknown]
  - Periorbital swelling [Unknown]
  - Eye swelling [Unknown]
  - Wrong product administered [Unknown]
  - Paraesthesia [Recovered/Resolved]
  - Hypoaesthesia [Recovered/Resolved]
  - Peripheral coldness [Not Recovered/Not Resolved]
  - Pain [Not Recovered/Not Resolved]

NARRATIVE: CASE EVENT DATE: 20231108
